FAERS Safety Report 7236135-8 (Version None)
Quarter: 2011Q1

REPORT INFORMATION
  Report Type: 
  Country: None (occurrence: None)
  Receive Date: 20110120
  Receipt Date: 20110117
  Transmission Date: 20110831
  Serious: No
  Sender: FDA-Public Use
  Company Number: US-JNJFOC-20110104840

PATIENT
  Sex: Male
  Weight: 74.84 kg

DRUGS (4)
  1. FENTANYL-100 [Suspect]
     Indication: NEURALGIA
     Dosage: NDC#: 0781-7242-55
     Route: 062
  2. LEVOXYL [Concomitant]
     Indication: THYROID DISORDER
     Route: 048
  3. NORCO [Concomitant]
     Indication: BREAKTHROUGH PAIN
     Route: 048
  4. STEROIDS NOS [Concomitant]
     Indication: NEURALGIA
     Route: 065

REACTIONS (4)
  - WRONG TECHNIQUE IN DRUG USAGE PROCESS [None]
  - NASOPHARYNGITIS [None]
  - PRODUCT ADHESION ISSUE [None]
  - THERAPEUTIC RESPONSE DECREASED [None]
